FAERS Safety Report 20580483 (Version 1)
Quarter: 2022Q1

REPORT INFORMATION
  Report Type: Spontaneous
  Country: US (occurrence: US)
  Receive Date: 20220311
  Receipt Date: 20220311
  Transmission Date: 20220424
  Serious: No
  Sender: FDA-Public Use
  Company Number: US-CHIESI-2021CHF06251

PATIENT
  Sex: Female
  Weight: 57 kg

DRUGS (4)
  1. FERRIPROX [Suspect]
     Active Substance: DEFERIPRONE
     Indication: Haemochromatosis
     Dosage: 5500 MILLIGRAM
     Route: 048
     Dates: start: 20210415
  2. FERRIPROX [Suspect]
     Active Substance: DEFERIPRONE
     Indication: Transfusion
     Dosage: 500 MILLIGRAM
     Route: 048
     Dates: start: 201905
  3. FERRIPROX [Suspect]
     Active Substance: DEFERIPRONE
     Indication: Iron deficiency anaemia
     Dosage: 1000 MILLIGRAM
     Dates: start: 202012
  4. VITAMINS [Concomitant]
     Active Substance: VITAMINS
     Indication: Product used for unknown indication
     Dosage: UNK

REACTIONS (1)
  - Body height decreased [Recovering/Resolving]

NARRATIVE: CASE EVENT DATE: 20210101
